FAERS Safety Report 7508716-5 (Version None)
Quarter: 2011Q2

REPORT INFORMATION
  Report Type: 
  Country: None (occurrence: None)
  Receive Date: 20110527
  Receipt Date: 20100901
  Transmission Date: 20111010
  Serious: No
  Sender: FDA-Public Use
  Company Number: A0878935A

PATIENT
  Age: 9 Year
  Sex: Female

DRUGS (2)
  1. CLARITIN [Concomitant]
  2. VENTOLIN [Suspect]
     Dosage: 2PUFF AS REQUIRED
     Route: 055
     Dates: start: 20100701

REACTIONS (5)
  - INSOMNIA [None]
  - VOMITING [None]
  - PALPITATIONS [None]
  - HEADACHE [None]
  - CRYING [None]
